FAERS Safety Report 20891545 (Version 5)
Quarter: 2023Q2

REPORT INFORMATION
  Report Type: Spontaneous
  Country: US (occurrence: US)
  Receive Date: 20220530
  Receipt Date: 20230403
  Transmission Date: 20230721
  Serious: No
  Sender: FDA-Public Use
  Company Number: US-BRISTOL-MYERS SQUIBB COMPANY-2022-034602

PATIENT
  Age: 73 Year
  Sex: Female
  Weight: 72.57 kg

DRUGS (5)
  1. REVLIMID [Suspect]
     Active Substance: LENALIDOMIDE
     Indication: Plasma cell myeloma
     Dosage: DAILY ON DAYS 1-21 EVERY 28 DAYS
     Route: 048
     Dates: start: 20200109, end: 20220901
  2. REVLIMID [Suspect]
     Active Substance: LENALIDOMIDE
     Indication: Plasmacytoma
     Dosage: FREQ: D1-21 Q 21 DAYS
     Route: 048
     Dates: start: 20210605
  3. REVLIMID [Suspect]
     Active Substance: LENALIDOMIDE
     Dosage: FREQ: DAILY FOR DAYS 1-21 EVERY 28 DAYS
     Route: 048
     Dates: start: 20210605
  4. REVLIMID [Suspect]
     Active Substance: LENALIDOMIDE
     Dosage: FREQ: DAILY FOR DAYS 1-21 EVERY 28 DAYS
     Route: 048
     Dates: start: 20210101
  5. DOXYCYCLINE [Suspect]
     Active Substance: DOXYCYCLINE
     Indication: Nasopharyngitis
     Dosage: FREQ: DAILY FOR DAYS 1-14
     Route: 048

REACTIONS (5)
  - Intentional product use issue [Unknown]
  - COVID-19 [Recovering/Resolving]
  - Cough [Recovering/Resolving]
  - White blood cell count decreased [Recovered/Resolved]
  - Diarrhoea [Recovered/Resolved]

NARRATIVE: CASE EVENT DATE: 20200109
